FAERS Safety Report 7720692-9 (Version None)
Quarter: 2011Q3

REPORT INFORMATION
  Report Type: 
  Country: None (occurrence: None)
  Receive Date: 20110831
  Receipt Date: 20110824
  Transmission Date: 20111222
  Serious: Yes (Hospitalization, Other)
  Sender: FDA-Public Use
  Company Number: PHEH2009US13607

PATIENT
  Sex: Male

DRUGS (36)
  1. ADVAIR DISKUS 100/50 [Concomitant]
  2. PNEUMOVAX 23 [Concomitant]
     Dosage: 0.5 ML, UNK
     Dates: start: 19991227
  3. LATANOPROST [Concomitant]
  4. TIOTROPIUM [Concomitant]
  5. XANAX [Concomitant]
     Dosage: 0.25 MG, TID
  6. VASOTEC [Concomitant]
     Dosage: 10 MG, QD
  7. PAXIL [Concomitant]
     Dosage: 25 MG, BID
  8. EFFEXOR [Concomitant]
     Dosage: 150 MG, QD
  9. XALATAN [Concomitant]
  10. MIRTAZAPINE [Concomitant]
     Dosage: 30 MG, UNK
  11. FLUTICASONE W/SALMETEROL [Concomitant]
  12. TIMOLOL MALEATE [Concomitant]
  13. ALPHAGAN [Concomitant]
  14. VITAMIN D [Concomitant]
     Dosage: 1000 IU, UNK
  15. MIDAZOLAM HCL [Concomitant]
     Indication: ANXIETY
  16. TYLENOL-500 [Concomitant]
     Dosage: 650 MG, Q4H PRN
     Route: 048
  17. CLEOCIN HYDROCHLORIDE [Concomitant]
     Dosage: 300 MG, TID
  18. CORTEF [Concomitant]
     Dosage: 5 MG, UNK
  19. TRUSOPT [Concomitant]
  20. MECLIZINE [Concomitant]
     Dosage: 50 MG, QID
  21. ALPRAZOLAM [Concomitant]
     Dosage: 0.5 MG, TID
  22. ENALAPRIL MALEATE [Concomitant]
     Dosage: 10 MG, UNK
  23. PAROXETINE HCL [Concomitant]
     Dosage: 15 MG, BID
  24. MOMETASONE FUROATE [Concomitant]
  25. INFLUENZA VACCINE [Concomitant]
     Dosage: UNK
     Dates: start: 20100101
  26. SEROQUEL [Concomitant]
     Dosage: 50 MG, TID
  27. TRIAMCINOLONE [Concomitant]
  28. KETOCONAZOLE [Concomitant]
     Dosage: 200 MG, TID2SDO
  29. REMERON [Concomitant]
     Dosage: 30 MG, QD
  30. SIMVASTATIN [Concomitant]
     Dosage: 80 MG, QD
  31. ZOMETA [Suspect]
     Indication: METASTASES TO CENTRAL NERVOUS SYSTEM
     Dosage: UNK
     Dates: start: 20040101, end: 20080501
  32. DARVOCET-N 50 [Concomitant]
  33. SPIRIVA [Concomitant]
  34. ALBUTEROL SULFATE AUTOHALER [Concomitant]
  35. CALCIUM CARBONATE [Concomitant]
     Dosage: 500 MG, UNK
  36. TETANUS VACCINE [Concomitant]
     Dosage: UNK
     Dates: start: 19990406

REACTIONS (32)
  - PAIN [None]
  - PROSTATE CANCER [None]
  - BUNDLE BRANCH BLOCK RIGHT [None]
  - AORTIC VALVE SCLEROSIS [None]
  - HAEMATOMA [None]
  - ANAEMIA [None]
  - PULMONARY HYPERTENSION [None]
  - RESPIRATORY DISORDER [None]
  - INJURY [None]
  - HYPERLIPIDAEMIA [None]
  - BACK PAIN [None]
  - NEPHROLITHIASIS [None]
  - ANHEDONIA [None]
  - DISABILITY [None]
  - RENAL CYST [None]
  - ANXIETY [None]
  - METASTASES TO BONE [None]
  - CARDIAC FAILURE CONGESTIVE [None]
  - FALL [None]
  - HEARING IMPAIRED [None]
  - AORTIC DILATATION [None]
  - CHRONIC OBSTRUCTIVE PULMONARY DISEASE [None]
  - GLUCOSE TOLERANCE IMPAIRED [None]
  - ADRENAL INSUFFICIENCY [None]
  - EMPHYSEMA [None]
  - AORTIC VALVE INCOMPETENCE [None]
  - DYSPNOEA [None]
  - OSTEONECROSIS OF JAW [None]
  - GLAUCOMA [None]
  - CORONARY ARTERY DISEASE [None]
  - DEPRESSION [None]
  - OSTEOARTHRITIS [None]
